FAERS Safety Report 16625742 (Version 1)
Quarter: 2019Q3

REPORT INFORMATION
  Report Type: Spontaneous
  Country: US (occurrence: US)
  Receive Date: 20190611
  Receipt Date: 20190611
  Transmission Date: 20191004
  Serious: Yes (Disabling)
  Sender: FDA-Public Use
  Company Number: None

PATIENT
  Age: 67 Year
  Sex: Male
  Weight: 97.52 kg

DRUGS (10)
  1. BYDUREON BCISE [Suspect]
     Active Substance: EXENATIDE
     Indication: TYPE 2 DIABETES MELLITUS
     Dosage: ?          QUANTITY:2 MG MILLIGRAM(S);?
     Route: 058
     Dates: start: 20190318, end: 20190422
  2. LISINOPRIL. [Concomitant]
     Active Substance: LISINOPRIL
  3. ST. JOHN^S WORT [Concomitant]
     Active Substance: ST. JOHN^S WORT
  4. LATANOPROST. [Concomitant]
     Active Substance: LATANOPROST
  5. METFORMIN [Concomitant]
     Active Substance: METFORMIN HYDROCHLORIDE
  6. ?FISH OIL [Concomitant]
  7. ACTOS [Concomitant]
     Active Substance: PIOGLITAZONE HYDROCHLORIDE
  8. ALLOPURINOL. [Concomitant]
     Active Substance: ALLOPURINOL
  9. AMLODIPINE [Concomitant]
     Active Substance: AMLODIPINE BESYLATE
  10. ISOSORBIDE. [Concomitant]
     Active Substance: ISOSORBIDE

REACTIONS (4)
  - Diarrhoea [None]
  - Nausea [None]
  - Abdominal distension [None]
  - Impaired gastric emptying [None]

NARRATIVE: CASE EVENT DATE: 20190501
